FAERS Safety Report 26206782 (Version 1)
Quarter: 2025Q4

REPORT INFORMATION
  Report Type: Spontaneous
  Country: CN (occurrence: CN)
  Receive Date: 20251229
  Receipt Date: 20251229
  Transmission Date: 20260117
  Serious: Yes (Hospitalization, Other)
  Sender: RANBAXY
  Company Number: CN-SUN PHARMACEUTICAL INDUSTRIES INC-2025R1-543791

PATIENT
  Age: 62 Year
  Sex: Female

DRUGS (1)
  1. CAPECITABINE [Suspect]
     Active Substance: CAPECITABINE
     Indication: Signet-ring cell carcinoma
     Dosage: UNK
     Route: 048

REACTIONS (4)
  - Polyp [Recovering/Resolving]
  - Chronic gastritis [Recovering/Resolving]
  - Bladder cancer [Recovering/Resolving]
  - Drug intolerance [Unknown]
